FAERS Safety Report 12074708 (Version 2)
Quarter: 2016Q1

REPORT INFORMATION
  Report Type: Spontaneous
  Country: ES (occurrence: ES)
  Receive Date: 20160212
  Receipt Date: 20160223
  Transmission Date: 20160526
  Serious: Yes (Other)
  Sender: FDA-Public Use
  Company Number: PHHY2016ES015520

PATIENT
  Age: 58 Year
  Sex: Female

DRUGS (1)
  1. GILENYA [Suspect]
     Active Substance: FINGOLIMOD HYDROCHLORIDE
     Indication: PRODUCT USED FOR UNKNOWN INDICATION
     Dosage: UNK
     Route: 065
     Dates: start: 20131106, end: 20160130

REACTIONS (11)
  - Central nervous system lesion [Unknown]
  - Multiple sclerosis relapse [Unknown]
  - Muscular weakness [Not Recovered/Not Resolved]
  - Cerebral disorder [Unknown]
  - Lymphopenia [Unknown]
  - Myelitis [Unknown]
  - Gait disturbance [Recovering/Resolving]
  - Pollakiuria [Recovering/Resolving]
  - Sensory disturbance [Recovered/Resolved with Sequelae]
  - Hypoaesthesia [Recovering/Resolving]
  - Trigeminal neuralgia [Recovering/Resolving]

NARRATIVE: CASE EVENT DATE: 201410
